FAERS Safety Report 5394349-6 (Version None)
Quarter: 2007Q3

REPORT INFORMATION
  Report Type: 
  Country: None (occurrence: None)
  Receive Date: 20070723
  Receipt Date: 20070525
  Transmission Date: 20080115
  Serious: No
  Sender: FDA-Public Use
  Company Number: A0653017A

PATIENT
  Sex: Female

DRUGS (3)
  1. AVANDIA [Suspect]
     Dosage: 4MG PER DAY
     Route: 048
     Dates: start: 20030101
  2. LASIX [Concomitant]
  3. ACLOVATE [Concomitant]

REACTIONS (3)
  - MYALGIA [None]
  - SWELLING [None]
  - WEIGHT INCREASED [None]
